FAERS Safety Report 5074172-2 (Version None)
Quarter: 2006Q3

REPORT INFORMATION
  Report Type: 
  Country: None (occurrence: None)
  Receive Date: 20060714
  Receipt Date: 20060523
  Transmission Date: 20061208
  Serious: No
  Sender: FDA-Public Use
  Company Number: 2006SP002185

PATIENT
  Age: 86 Year
  Weight: 74.8435 kg

DRUGS (7)
  1. LUNESTA [Suspect]
     Indication: INSOMNIA
     Dosage: 3 MG;HS;ORAL
     Route: 048
     Dates: start: 20060101, end: 20060522
  2. ATORVASTATIN CALCIUM [Concomitant]
  3. QUINIDINE HCL [Concomitant]
  4. CELEBREX [Concomitant]
  5. ASPIRIN [Concomitant]
  6. LACTULOSE [Concomitant]
  7. MULTIVITAMIN [Concomitant]

REACTIONS (1)
  - DRUG EFFECT DECREASED [None]
